FAERS Safety Report 12390058 (Version 2)
Quarter: 2016Q3

REPORT INFORMATION
  Report Type: Spontaneous
  Country: US (occurrence: US)
  Receive Date: 20160520
  Receipt Date: 20160812
  Transmission Date: 20161109
  Serious: Yes (Other)
  Sender: FDA-Public Use
  Company Number: US-BAYER-2016-093592

PATIENT
  Age: 26 Year
  Sex: Female
  Weight: 129.25 kg

DRUGS (2)
  1. MIRENA [Suspect]
     Active Substance: LEVONORGESTREL
     Indication: MENORRHAGIA
  2. MIRENA [Suspect]
     Active Substance: LEVONORGESTREL
     Indication: CONTRACEPTION
     Dosage: 20 MCG/24HR, CONT
     Route: 015
     Dates: start: 20131010, end: 20140609

REACTIONS (8)
  - Pregnancy with contraceptive device [None]
  - Stress [None]
  - Abortion spontaneous [None]
  - Drug ineffective [None]
  - Anxiety [None]
  - Embedded device [None]
  - Injury [None]
  - Depression [None]

NARRATIVE: CASE EVENT DATE: 201406
